FAERS Safety Report 23010089 (Version 2)
Quarter: 2023Q4

REPORT INFORMATION
  Report Type: Spontaneous
  Country: HR (occurrence: HR)
  Receive Date: 20230929
  Receipt Date: 20231005
  Transmission Date: 20240109
  Serious: Yes (Death, Hospitalization)
  Sender: FDA-Public Use
  Company Number: HR-MYLANLABS-2023M1101648

PATIENT
  Sex: Male

DRUGS (2)
  1. FULPHILA [Suspect]
     Active Substance: PEGFILGRASTIM-JMDB
     Indication: Febrile neutropenia
     Dosage: UNK
     Route: 058
     Dates: start: 20230724, end: 20230724
  2. CARBOPLATIN;ETOPOSIDE [Concomitant]
     Indication: Lung neoplasm malignant
     Dosage: UNK
     Route: 065
     Dates: start: 20230720, end: 20230723

REACTIONS (3)
  - Septic shock [Fatal]
  - Pneumonia [Fatal]
  - Drug ineffective [Recovered/Resolved]

NARRATIVE: CASE EVENT DATE: 20230729
